FAERS Safety Report 6446423-0 (Version None)
Quarter: 2009Q4

REPORT INFORMATION
  Report Type: 
  Country: None (occurrence: None)
  Receive Date: 20091119
  Receipt Date: 20091110
  Transmission Date: 20100525
  Serious: Yes (Hospitalization)
  Sender: FDA-Public Use
  Company Number: PHHO2009CH13971

PATIENT
  Sex: Male

DRUGS (3)
  1. RAD 666 RAD+TAB [Suspect]
     Indication: RENAL TRANSPLANT
     Dosage: UNKNOWN
     Route: 048
     Dates: start: 20090705
  2. NEORAL [Suspect]
     Indication: RENAL TRANSPLANT
     Dosage: UNKNOWN
     Route: 048
     Dates: start: 20090705
  3. STEROIDS NOS [Suspect]

REACTIONS (1)
  - PULMONARY EMBOLISM [None]
